FAERS Safety Report 13429996 (Version 1)
Quarter: 2017Q2

REPORT INFORMATION
  Report Type: Spontaneous
  Country: CN (occurrence: CN)
  Receive Date: 20170412
  Receipt Date: 20170412
  Transmission Date: 20170830
  Serious: Yes (Other)
  Sender: FDA-Public Use
  Company Number: CN-ROCHE-1918358

PATIENT
  Age: 46 Year
  Sex: Male
  Weight: 50 kg

DRUGS (3)
  1. IMIPENEM AND CILASTATIN SODIUM [Concomitant]
     Active Substance: CILASTATIN SODIUM\IMIPENEM
     Indication: INFECTION
     Route: 041
     Dates: start: 20161109, end: 20161117
  2. VORICONAZOLE. [Suspect]
     Active Substance: VORICONAZOLE
     Indication: INFECTION
     Route: 041
     Dates: start: 20161117, end: 20161122
  3. CYMEVENE [Suspect]
     Active Substance: GANCICLOVIR
     Indication: INFECTION
     Route: 041
     Dates: start: 20161109, end: 20161121

REACTIONS (1)
  - Myoglobin blood increased [Recovering/Resolving]

NARRATIVE: CASE EVENT DATE: 20161120
